FAERS Safety Report 5585326-0 (Version None)
Quarter: 2007Q4

REPORT INFORMATION
  Report Type: 
  Country: None (occurrence: None)
  Receive Date: 20071130
  Receipt Date: 20070619
  Transmission Date: 20080405
  Serious: Yes (Other)
  Sender: FDA-Public Use
  Company Number: WAES 0706USA03221

PATIENT
  Age: 59 Year
  Sex: Female
  Weight: 67.1324 kg

DRUGS (4)
  1. FOSAMAX [Suspect]
     Indication: OSTEOPOROSIS
     Dosage: 10 MG/DAILY/PO ; 70 MG/WKY/PO
     Route: 048
     Dates: end: 20061220
  2. FOSAMAX [Suspect]
     Indication: OSTEOPOROSIS
     Dosage: 10 MG/DAILY/PO ; 70 MG/WKY/PO
     Route: 048
     Dates: start: 20000207
  3. DARVOCET-N 100 [Concomitant]
  4. CLINDAMYCIN HCL [Concomitant]

REACTIONS (8)
  - ANKLE FRACTURE [None]
  - ANXIETY [None]
  - BLOOD CHOLESTEROL INCREASED [None]
  - DEPRESSION [None]
  - HYPERTENSION [None]
  - OSTEONECROSIS [None]
  - RHINITIS [None]
  - SINUSITIS [None]
